FAERS Safety Report 16268749 (Version 3)
Quarter: 2020Q4

REPORT INFORMATION
  Report Type: Report from Study
  Country: US (occurrence: US)
  Receive Date: 20190503
  Receipt Date: 20201205
  Transmission Date: 20210113
  Serious: Yes (Hospitalization)
  Sender: FDA-Public Use
  Company Number: US-UCBSA-2018054410

PATIENT
  Age: 71 Year
  Sex: Female

DRUGS (4)
  1. LACOSAMIDE. [Suspect]
     Active Substance: LACOSAMIDE
     Indication: PARTIAL SEIZURES
     Dosage: 100 MG, 2X/DAY (BID)
     Dates: start: 201810
  2. LACOSAMIDE. [Suspect]
     Active Substance: LACOSAMIDE
     Indication: EPILEPSY
     Dosage: 150 MG, 2X/DAY (BID)
  3. LACOSAMIDE. [Suspect]
     Active Substance: LACOSAMIDE
     Indication: SEIZURE
  4. KEPPRA [Suspect]
     Active Substance: LEVETIRACETAM
     Indication: SEIZURE
     Dosage: UNK
     Dates: start: 201810

REACTIONS (4)
  - Mobility decreased [Not Recovered/Not Resolved]
  - Dysgraphia [Not Recovered/Not Resolved]
  - White blood cell count increased [Recovered/Resolved]
  - Seizure [Recovered/Resolved]

NARRATIVE: CASE EVENT DATE: 20181203
